FAERS Safety Report 8880124 (Version 2)
Quarter: 2013Q1

REPORT INFORMATION
  Report Type: Spontaneous
  Country: NZ (occurrence: NZ)
  Receive Date: 20121031
  Receipt Date: 20130207
  Transmission Date: 20140127
  Serious: Yes (Other)
  Sender: FDA-Public Use
  Company Number: NZ-PFIZER INC-2012271750

PATIENT
  Sex: 0

DRUGS (3)
  1. DEXAMETHASONE SODIUM PHOSPHATE [Suspect]
     Dosage: UNK
  2. MYCOPHENOLATE MOFETIL [Suspect]
     Dosage: UNK
  3. TACROLIMUS [Suspect]
     Dosage: UNK

REACTIONS (1)
  - Progressive multifocal leukoencephalopathy [Unknown]
